FAERS Safety Report 8483093-4 (Version None)
Quarter: 2012Q3

REPORT INFORMATION
  Report Type: 
  Country: None (occurrence: None)
  Receive Date: 20120702
  Receipt Date: 20120628
  Transmission Date: 20120928
  Serious: Yes (Disabling)
  Sender: FDA-Public Use
  Company Number: JP-B.I. PHARMACEUTICALS,INC./RIDGEFIELD-2012-BP-14676NB

PATIENT
  Age: 0 Year

DRUGS (5)
  1. DEPAS [Concomitant]
     Indication: MATERNAL EXPOSURE DURING PREGNANCY
     Route: 064
  2. LENDORMIN [Concomitant]
     Indication: MATERNAL EXPOSURE DURING PREGNANCY
     Route: 064
  3. AMLODIPINE [Concomitant]
     Indication: MATERNAL EXPOSURE DURING PREGNANCY
     Route: 064
  4. LANSOPRAZOLE [Concomitant]
     Indication: MATERNAL EXPOSURE DURING PREGNANCY
     Route: 064
  5. MICARDIS [Suspect]
     Indication: MATERNAL EXPOSURE DURING PREGNANCY
     Dosage: 40 MG
     Route: 064
     Dates: end: 20120608

REACTIONS (1)
  - PULMONARY HYPOPLASIA [None]
